FAERS Safety Report 4423404-X (Version None)
Quarter: 2004Q3

REPORT INFORMATION
  Report Type: 
  Country: None (occurrence: None)
  Receive Date: 20040806
  Receipt Date: 20040726
  Transmission Date: 20050211
  Serious: No
  Sender: FDA-Public Use
  Company Number: 04P-167-0268488-00

PATIENT
  Age: 53 Year
  Sex: Male
  Weight: 74 kg

DRUGS (3)
  1. HUMIRA [Suspect]
     Indication: RHEUMATOID ARTHRITIS
     Dosage: 40 MG, SUBCUTANEOUS
     Route: 058
     Dates: start: 20040618, end: 20040702
  2. BENORILATE [Concomitant]
  3. PREDNISONE [Concomitant]

REACTIONS (4)
  - ARTHRALGIA [None]
  - CHILLS [None]
  - INJECTION SITE RASH [None]
  - RASH GENERALISED [None]
